FAERS Safety Report 6608899-5 (Version None)
Quarter: 2010Q1

REPORT INFORMATION
  Report Type: 
  Country: None (occurrence: None)
  Receive Date: 20100301
  Receipt Date: 20100218
  Transmission Date: 20100710
  Serious: Yes (Other)
  Sender: FDA-Public Use
  Company Number: US-PFIZER INC-2010021990

PATIENT
  Sex: Male
  Weight: 68.027 kg

DRUGS (4)
  1. CHANTIX [Suspect]
     Indication: SMOKING CESSATION THERAPY
     Dosage: 1 MG, 2X/DAY
     Route: 048
     Dates: end: 20090101
  2. NEXIUM [Concomitant]
     Indication: ABDOMINAL DISCOMFORT
     Dosage: 40 MG DAILY
     Route: 048
  3. NEURONTIN [Concomitant]
     Indication: STRESS
     Dosage: 300 MG, 1X/DAY
     Route: 048
  4. CYCLOBENZAPRINE [Concomitant]
     Indication: MUSCLE SPASMS
     Dosage: 10 MG DAILY
     Route: 048

REACTIONS (3)
  - DYSURIA [None]
  - PROTEIN URINE [None]
  - SUICIDE ATTEMPT [None]
